FAERS Safety Report 23865607 (Version 1)
Quarter: 2024Q2

REPORT INFORMATION
  Report Type: Other
  Country: GB (occurrence: GB)
  Receive Date: 20240517
  Receipt Date: 20240517
  Transmission Date: 20240716
  Serious: Yes (Hospitalization)
  Sender: FDA-Public Use
  Company Number: GB-OrBion Pharmaceuticals Private Limited-2157118

PATIENT
  Age: 46 Year
  Sex: Male

DRUGS (1)
  1. AMLODIPINE BESYLATE [Suspect]
     Active Substance: AMLODIPINE BESYLATE
     Indication: Intentional overdose
     Route: 048

REACTIONS (3)
  - Myocarditis [Recovered/Resolved]
  - Intentional overdose [Unknown]
  - Pulmonary oedema [Recovered/Resolved]
